FAERS Safety Report 14243576 (Version 3)
Quarter: 2018Q1

REPORT INFORMATION
  Report Type: Spontaneous
  Country: US (occurrence: US)
  Receive Date: 20171201
  Receipt Date: 20180227
  Transmission Date: 20180508
  Serious: Yes (Other)
  Sender: FDA-Public Use
  Company Number: US-PFIZER INC-2017510393

PATIENT
  Sex: Female

DRUGS (2)
  1. MENEST [Suspect]
     Active Substance: ESTROGENS, ESTERIFIED
     Dosage: 0.3 MG, UNK
  2. MENEST [Suspect]
     Active Substance: ESTROGENS, ESTERIFIED
     Dosage: UNK (CUT ONE OF HALF/1 AND HALF (0.45))

REACTIONS (3)
  - Nausea [Unknown]
  - Alopecia [Unknown]
  - Blindness [Unknown]
